FAERS Safety Report 6308169-9 (Version None)
Quarter: 2009Q3

REPORT INFORMATION
  Report Type: 
  Country: None (occurrence: None)
  Receive Date: 20090813
  Receipt Date: 20090810
  Transmission Date: 20100115
  Serious: Yes (Death, Life-Threatening, Other)
  Sender: FDA-Public Use
  Company Number: FR-BAYER-200925160GPV

PATIENT
  Sex: Female

DRUGS (18)
  1. CIFLOX [Suspect]
     Indication: FEBRILE BONE MARROW APLASIA
     Dosage: TOTAL DAILY DOSE: 800 MG  UNIT DOSE: 400 MG
     Route: 042
     Dates: start: 20090413, end: 20090422
  2. BACTRIM [Suspect]
     Indication: HIV INFECTION
     Route: 065
     Dates: start: 20090120, end: 20090515
  3. FLAGYL [Suspect]
     Indication: FEBRILE BONE MARROW APLASIA
     Dosage: TOTAL DAILY DOSE: 1.5 G  UNIT DOSE: 0.5 G
     Route: 042
     Dates: start: 20090413, end: 20090420
  4. FLAGYL [Suspect]
     Indication: STAPHYLOCOCCAL SEPSIS
     Route: 042
     Dates: start: 20090515, end: 20090521
  5. TIENAM [Suspect]
     Indication: FEBRILE BONE MARROW APLASIA
     Dosage: UNIT DOSE: 500 MG
     Route: 042
     Dates: start: 20090416, end: 20090422
  6. VANCOMYCIN [Suspect]
     Indication: FEBRILE BONE MARROW APLASIA
     Dosage: NOS
     Route: 042
     Dates: start: 20090413, end: 20090421
  7. VANCOMYCIN [Suspect]
     Indication: STAPHYLOCOCCAL SEPSIS
     Dosage: NOS
     Route: 042
     Dates: start: 20090511, end: 20090521
  8. KALETRA [Concomitant]
     Indication: HIV INFECTION
     Route: 065
     Dates: start: 20090408
  9. KALETRA [Concomitant]
     Route: 065
     Dates: start: 20090120
  10. 2CTRUVADA [Concomitant]
     Indication: HIV INFECTION
     Route: 065
     Dates: start: 20090408
  11. 2CTRUVADA [Concomitant]
     Route: 065
     Dates: start: 20090120
  12. ENDOXAN [Concomitant]
     Indication: EPSTEIN-BARR VIRUS ASSOCIATED LYMPHOPROLIFERATIVE DISORDER
     Route: 042
     Dates: start: 20090101
  13. ADRIAMYCIN PFS [Concomitant]
     Indication: CHEMOTHERAPY
     Route: 042
     Dates: start: 20090101
  14. ONCOVIN [Concomitant]
     Indication: CHEMOTHERAPY
     Route: 042
     Dates: start: 20090101
  15. FORTUMSET [Concomitant]
     Indication: FEBRILE BONE MARROW APLASIA
     Dosage: TOTAL DAILY DOSE: 3 G  UNIT DOSE: 1 G
     Route: 042
     Dates: start: 20090412, end: 20090416
  16. GENTAMYCIN SULFATE [Concomitant]
     Indication: STAPHYLOCOCCAL SEPSIS
     Route: 042
     Dates: start: 20090515
  17. TAZOCILLINE [Concomitant]
     Indication: SEPSIS
     Route: 042
     Dates: start: 20090512, end: 20090520
  18. LEVOPHED [Concomitant]
     Indication: BLOOD PRESSURE DECREASED
     Route: 042
     Dates: start: 20090521, end: 20090521

REACTIONS (6)
  - ABDOMINAL PAIN [None]
  - DIARRHOEA [None]
  - HAEMORRHAGIC DISORDER [None]
  - PSEUDOMEMBRANOUS COLITIS [None]
  - STAPHYLOCOCCAL SEPSIS [None]
  - THROMBOCYTOPENIA [None]
